FAERS Safety Report 17883656 (Version 1)
Quarter: 2020Q2

REPORT INFORMATION
  Report Type: Spontaneous
  Country: US (occurrence: US)
  Receive Date: 20200610
  Receipt Date: 20200610
  Transmission Date: 20200714
  Serious: Yes (Life-Threatening, Hospitalization, Disabling)
  Sender: FDA-Public Use
  Company Number: None

PATIENT
  Age: 23 Year
  Sex: Female
  Weight: 58.51 kg

DRUGS (2)
  1. TRAMADOL. [Concomitant]
     Active Substance: TRAMADOL
  2. SKYLA [Suspect]
     Active Substance: LEVONORGESTREL
     Dates: start: 20170425, end: 20200609

REACTIONS (18)
  - Premenstrual syndrome [None]
  - Blindness [None]
  - Hypertension [None]
  - Panic attack [None]
  - Tinnitus [None]
  - Suicidal ideation [None]
  - Crying [None]
  - Irritability [None]
  - Syncope [None]
  - Retching [None]
  - Mood swings [None]
  - Depression [None]
  - Anxiety [None]
  - Nausea [None]
  - Vomiting [None]
  - Haemorrhage [None]
  - Dyspareunia [None]
  - Anaemia [None]
